FAERS Safety Report 7718757-0 (Version None)
Quarter: 2011Q3

REPORT INFORMATION
  Report Type: 
  Country: None (occurrence: None)
  Receive Date: 20110830
  Receipt Date: 20110826
  Transmission Date: 20111222
  Serious: Yes (Other)
  Sender: FDA-Public Use
  Company Number: US-PFIZER INC-2011199270

PATIENT
  Age: 54 Year
  Sex: Male

DRUGS (2)
  1. QUINAPRIL HCL [Suspect]
     Dosage: QUINAPRIL HCL 20/25 MG, UNK
  2. LIPITOR [Suspect]
     Dosage: 10 MG, UNK

REACTIONS (2)
  - MYALGIA [None]
  - MUSCLE RUPTURE [None]
